FAERS Safety Report 25467599 (Version 1)
Quarter: 2025Q2

REPORT INFORMATION
  Report Type: Report from Study
  Country: FR (occurrence: FR)
  Receive Date: 20250623
  Receipt Date: 20250623
  Transmission Date: 20250717
  Serious: Yes (Other)
  Sender: AUROBINDO
  Company Number: FR-DELBERT-2025000234

PATIENT
  Age: 51 Year
  Sex: Male

DRUGS (2)
  1. AMOXICILLIN\CLAVULANIC ACID [Suspect]
     Active Substance: AMOXICILLIN\CLAVULANIC ACID
     Indication: Antibiotic therapy
     Route: 065
  2. KETAMINE [Concomitant]
     Active Substance: KETAMINE
     Indication: Sedative therapy
     Route: 065

REACTIONS (1)
  - Cholestatic liver injury [Unknown]
